FAERS Safety Report 9695276 (Version 1)
Quarter: 2013Q4

REPORT INFORMATION
  Report Type: Spontaneous
  Country: US (occurrence: None)
  Receive Date: 20131118
  Receipt Date: 20131118
  Transmission Date: 20140711
  Serious: Yes (Death, Other)
  Sender: FDA-Public Use
  Company Number: None

PATIENT
  Age: 46 Year
  Sex: Female
  Weight: 58.97 kg

DRUGS (1)
  1. REQUIP 10 MG [Suspect]
     Indication: RESTLESS LEGS SYNDROME
     Dosage: 1-3 AT BEDTIME TAKEN BY MOUTH
     Route: 048
     Dates: start: 20030602, end: 20131105

REACTIONS (4)
  - Overdose [None]
  - Completed suicide [None]
  - Abnormal behaviour [None]
  - Social avoidant behaviour [None]
